FAERS Safety Report 25773330 (Version 4)
Quarter: 2025Q4

REPORT INFORMATION
  Report Type: Report from Study
  Country: GB (occurrence: GB)
  Receive Date: 20250908
  Receipt Date: 20251216
  Transmission Date: 20260119
  Serious: Yes (Death, Hospitalization, Other)
  Sender: TEVA
  Company Number: GB-TEVA-VS-3368662

PATIENT
  Age: 87 Year
  Sex: Male

DRUGS (1)
  1. OCTREOTIDE [Suspect]
     Active Substance: OCTREOTIDE
     Indication: Product used for unknown indication
     Route: 065

REACTIONS (9)
  - Death [Fatal]
  - Loss of consciousness [Unknown]
  - Bedridden [Unknown]
  - Pneumonia [Unknown]
  - COVID-19 [Unknown]
  - Ankle fracture [Unknown]
  - Product dose omission issue [Unknown]
  - Weight bearing difficulty [Unknown]
  - Fall [Unknown]

NARRATIVE: CASE EVENT DATE: 20251205
